FAERS Safety Report 16033902 (Version 2)
Quarter: 2019Q1

REPORT INFORMATION
  Report Type: Spontaneous
  Country: FR (occurrence: FR)
  Receive Date: 20190305
  Receipt Date: 20190328
  Transmission Date: 20190418
  Serious: Yes (Death)
  Sender: FDA-Public Use
  Company Number: FR-TEVA-2019-FR-1017862

PATIENT
  Age: 92 Year
  Sex: Male
  Weight: 88.7 kg

DRUGS (9)
  1. ROVAMYCINE 1 500 000 UI, COMPRIM? PELLICUL? [Suspect]
     Active Substance: SPIRAMYCIN
     Indication: LUNG INFECTION
     Dosage: 4 DOSAGE FORMS DAILY;
     Route: 048
     Dates: start: 20190130, end: 20190201
  2. ADENURIC [Suspect]
     Active Substance: FEBUXOSTAT
     Indication: GOUT
     Dosage: 1 DOSAGE FORMS DAILY;
     Route: 048
     Dates: end: 20190201
  3. PREVISCAN 20 MG, COMPRIM? S?CABLE [Suspect]
     Active Substance: FLUINDIONE
     Indication: ATRIAL FIBRILLATION
     Dosage: 1 DOSAGE FORMS DAILY;
     Route: 048
     Dates: end: 20190131
  4. ATROVENT [Suspect]
     Active Substance: IPRATROPIUM BROMIDE
     Indication: CHRONIC OBSTRUCTIVE PULMONARY DISEASE
     Dosage: 3 DOSAGE FORMS DAILY;
     Route: 055
     Dates: end: 20190201
  5. CEFTRIAXONE MYLAN 1 G, POUDRE POUR SOLUTION INJECTABLE [Suspect]
     Active Substance: CEFTRIAXONE
     Indication: LUNG INFECTION
     Route: 041
     Dates: start: 20190126, end: 20190201
  6. VENOFER [Suspect]
     Active Substance: IRON SUCROSE
     Indication: ANAEMIA
     Dosage: 2 DOSAGE FORMS DAILY;
     Route: 041
     Dates: start: 20190131, end: 20190131
  7. VERAPAMIL (CHLORHYDRATE DE) [Suspect]
     Active Substance: VERAPAMIL HYDROCHLORIDE
     Indication: HYPERTENSION
     Dosage: 1 DOSAGE FORMS DAILY;
     Route: 048
     Dates: end: 20190201
  8. RAMIPRIL MYLAN 1,25 MG, COMPRIM? [Suspect]
     Active Substance: RAMIPRIL
     Indication: HYPERTENSION
     Dosage: 1 DOSAGE FORMS DAILY;
     Route: 048
     Dates: end: 20190201
  9. BRICANYL [Suspect]
     Active Substance: TERBUTALINE SULFATE
     Indication: CHRONIC OBSTRUCTIVE PULMONARY DISEASE
     Dosage: 3 DOSAGE FORMS DAILY;
     Route: 055
     Dates: end: 20190201

REACTIONS (1)
  - Cerebral haematoma [Fatal]

NARRATIVE: CASE EVENT DATE: 20190201
